FAERS Safety Report 4797011-3 (Version None)
Quarter: 2005Q3

REPORT INFORMATION
  Report Type: 
  Country: None (occurrence: None)
  Receive Date: 20050916
  Receipt Date: 20050609
  Transmission Date: 20060218
  Serious: Yes (Hospitalization)
  Sender: FDA-Public Use
  Company Number: US-JNJFOC-20050206373

PATIENT
  Age: 3 Year
  Sex: Male

DRUGS (1)
  1. TOPAMAX [Suspect]

REACTIONS (2)
  - BLOOD BICARBONATE DECREASED [None]
  - METABOLIC ACIDOSIS [None]
